FAERS Safety Report 9266031 (Version 3)
Quarter: 2013Q4

REPORT INFORMATION
  Report Type: Spontaneous
  Country: US (occurrence: US)
  Receive Date: 20130501
  Receipt Date: 20131004
  Transmission Date: 20140711
  Serious: Yes (Hospitalization, Other)
  Sender: FDA-Public Use
  Company Number: US-B.I. PHARMACEUTICALS,INC./RIDGEFIELD-2013-BI-11944BP

PATIENT
  Age: 74 Year
  Sex: Male
  Weight: 90.72 kg

DRUGS (10)
  1. PRADAXA [Suspect]
     Indication: ANTICOAGULANT THERAPY
     Dosage: 300 MG
     Dates: start: 20110502, end: 20120505
  2. PRADAXA [Suspect]
     Indication: ATRIAL FIBRILLATION
  3. TRILIPIX [Concomitant]
     Dates: start: 2006, end: 201205
  4. LIVALO [Concomitant]
     Dates: start: 2006, end: 201205
  5. ASPIRIN [Concomitant]
     Dates: start: 20100208, end: 20120505
  6. PLETAL [Concomitant]
     Dates: start: 20080410, end: 20120725
  7. TYLENOL [Concomitant]
  8. IBUPROFEN [Concomitant]
  9. DIOVAN [Concomitant]
     Dates: start: 20100208, end: 20120626
  10. FISH OIL DHA + EPA [Concomitant]
     Dates: start: 20101011

REACTIONS (5)
  - Septic shock [Unknown]
  - Gastrointestinal haemorrhage [Unknown]
  - Liver injury [Recovered/Resolved]
  - Renal failure acute [Recovered/Resolved]
  - Colitis ischaemic [Unknown]
